FAERS Safety Report 21498918 (Version 1)
Quarter: 2022Q4

REPORT INFORMATION
  Report Type: Spontaneous
  Country: SE (occurrence: SE)
  Receive Date: 20221024
  Receipt Date: 20221024
  Transmission Date: 20230113
  Serious: Yes (Other)
  Sender: FDA-Public Use
  Company Number: None

PATIENT
  Age: 77 Year
  Sex: Female

DRUGS (1)
  1. CAPTOPRIL [Suspect]
     Active Substance: CAPTOPRIL
     Indication: Hypertension
     Dosage: UNK
     Route: 065

REACTIONS (13)
  - Mental disorder [Unknown]
  - Dizziness [Unknown]
  - Hot flush [Unknown]
  - Diarrhoea [Unknown]
  - Constipation [Unknown]
  - Sleep disorder [Unknown]
  - Nausea [Unknown]
  - Depression [Unknown]
  - Vision blurred [Unknown]
  - Palpitations [Unknown]
  - Dry mouth [Unknown]
  - Photosensitivity reaction [Unknown]
  - Headache [Unknown]
